FAERS Safety Report 11329316 (Version 4)
Quarter: 2016Q3

REPORT INFORMATION
  Report Type: Spontaneous
  Country: CA (occurrence: CA)
  Receive Date: 20150803
  Receipt Date: 20160909
  Transmission Date: 20161109
  Serious: Yes (Other)
  Sender: FDA-Public Use
  Company Number: CA-ROCHE-1615812

PATIENT
  Age: 34 Year
  Sex: Male
  Weight: 73 kg

DRUGS (4)
  1. RIBAVIRIN. [Suspect]
     Active Substance: RIBAVIRIN
     Indication: HEPATITIS C
     Dosage: THERAPY DURATION: 84 DAYS
     Route: 048
     Dates: start: 20141011, end: 20150102
  2. PEGASYS [Suspect]
     Active Substance: PEGINTERFERON ALFA-2A
     Indication: HEPATITIS C
     Dosage: THERAPY DURATION: 78 DAYS
     Route: 058
     Dates: start: 20141010, end: 20141226
  3. SOVALDI [Suspect]
     Active Substance: SOFOSBUVIR
     Indication: HEPATITIS C
     Dosage: THERAPY DURATON: 84 DAYS
     Route: 048
     Dates: start: 20141011, end: 20150102
  4. ZOPLICONE [Suspect]
     Active Substance: ZOPICLONE
     Indication: INSOMNIA
     Route: 065

REACTIONS (20)
  - Anxiety [Recovered/Resolved]
  - Myalgia [Recovered/Resolved]
  - Thinking abnormal [Recovered/Resolved]
  - Arthralgia [Recovered/Resolved]
  - Affect lability [Recovered/Resolved]
  - Fatigue [Recovered/Resolved]
  - Influenza like illness [Recovered/Resolved]
  - Pain [Recovered/Resolved]
  - Weight decreased [Recovered/Resolved]
  - Dry mouth [Recovered/Resolved]
  - Anger [Recovered/Resolved]
  - Irritability [Recovered/Resolved]
  - Bedridden [Recovered/Resolved]
  - Decreased appetite [Recovered/Resolved]
  - Depressed mood [Recovered/Resolved]
  - Depression [Recovered/Resolved]
  - Feeling abnormal [Recovered/Resolved]
  - Insomnia [Recovered/Resolved]
  - Malaise [Recovered/Resolved]
  - Pruritus [Recovered/Resolved]

NARRATIVE: CASE EVENT DATE: 20141125
